FAERS Safety Report 5990467-X (Version None)
Quarter: 2008Q4

REPORT INFORMATION
  Report Type: 
  Country: None (occurrence: None)
  Receive Date: 20081211
  Receipt Date: 20081208
  Transmission Date: 20090506
  Serious: Yes (Hospitalization)
  Sender: FDA-Public Use
  Company Number: FR-BRISTOL-MYERS SQUIBB COMPANY-14436083

PATIENT
  Age: 75 Year
  Sex: Male

DRUGS (8)
  1. COAPROVEL [Suspect]
     Dosage: 1 DOSAGE FORM = 300MG/12.5 MG. STOPPED ON 10-OCT-2008.
     Dates: start: 20081007, end: 20081010
  2. APROVEL [Suspect]
     Dates: start: 20081001
  3. LOVENOX [Concomitant]
     Dosage: 1 DOSAGE FORM=4000 IU
  4. LOXEN [Concomitant]
     Dates: end: 20081007
  5. ASPEGIC 325 [Concomitant]
  6. INIPOMP [Concomitant]
  7. VITAMIN B1 TAB [Concomitant]
  8. VITAMIN B6 [Concomitant]

REACTIONS (4)
  - CEREBROVASCULAR ACCIDENT [None]
  - RENAL FAILURE ACUTE [None]
  - URINARY RETENTION [None]
  - URINARY TRACT INFECTION [None]
